FAERS Safety Report 7201211-2 (Version None)
Quarter: 2010Q4

REPORT INFORMATION
  Report Type: 
  Country: None (occurrence: None)
  Receive Date: 20101227
  Receipt Date: 20101227
  Transmission Date: 20110411
  Serious: Yes (Other)
  Sender: FDA-Public Use
  Company Number: None

PATIENT
  Sex: Female

DRUGS (2)
  1. MINOCYCLINE 100MG RAMBAXY [Suspect]
     Indication: ROSACEA
     Dosage: 100MG BID BUCCAL
     Route: 002
     Dates: start: 20101203, end: 20101215
  2. MINOCYCLINE 100MG RAMBAXY [Suspect]
     Indication: TRANSIENT ACANTHOLYTIC DERMATOSIS
     Dosage: 100MG BID BUCCAL
     Route: 002
     Dates: start: 20101203, end: 20101215

REACTIONS (4)
  - CHILLS [None]
  - HEADACHE [None]
  - NAUSEA [None]
  - PAIN [None]
